FAERS Safety Report 9894035 (Version 3)
Quarter: 2014Q2

REPORT INFORMATION
  Report Type: Spontaneous
  Country: US (occurrence: US)
  Receive Date: 20140213
  Receipt Date: 20140422
  Transmission Date: 20141212
  Serious: No
  Sender: FDA-Public Use
  Company Number: US-PFIZER INC-2014039920

PATIENT
  Age: 73 Year
  Sex: Female

DRUGS (6)
  1. NEURONTIN [Suspect]
     Dosage: UNK
  2. MORPHINE SULFATE [Suspect]
     Dosage: UNK
  3. CORTISONE [Suspect]
     Dosage: UNK
  4. VANCOMYCIN HCL [Suspect]
     Dosage: UNK
  5. TRAMADOL HYDROCHLORIDE [Suspect]
     Dosage: UNK
  6. BIAXIN [Suspect]
     Dosage: UNK

REACTIONS (1)
  - Drug hypersensitivity [Unknown]
